FAERS Safety Report 15919327 (Version 1)
Quarter: 2019Q1

REPORT INFORMATION
  Report Type: Spontaneous
  Country: FR (occurrence: FR)
  Receive Date: 20190205
  Receipt Date: 20190205
  Transmission Date: 20190417
  Serious: Yes (Other)
  Sender: FDA-Public Use
  Company Number: FR-GLAXOSMITHKLINE-FR2019GSK008826

PATIENT
  Sex: Male
  Weight: 72 kg

DRUGS (1)
  1. IMIJECT [Suspect]
     Active Substance: SUMATRIPTAN SUCCINATE
     Indication: CLUSTER HEADACHE
     Dosage: 6 MG, QID, 20 TO 30 DAYS PER MONTH
     Route: 042

REACTIONS (3)
  - Off label use [Unknown]
  - Dependence [Unknown]
  - Intentional overdose [Unknown]
